FAERS Safety Report 25076109 (Version 2)
Quarter: 2025Q1

REPORT INFORMATION
  Report Type: Spontaneous
  Country: CN (occurrence: CN)
  Receive Date: 20250313
  Receipt Date: 20250317
  Transmission Date: 20250408
  Serious: Yes (Life-Threatening, Hospitalization)
  Sender: NOVARTIS
  Company Number: CN-002147023-NVSC2025CN042563

PATIENT
  Age: 56 Year
  Sex: Female
  Weight: 67 kg

DRUGS (3)
  1. OXCARBAZEPINE [Suspect]
     Active Substance: OXCARBAZEPINE
     Indication: Epilepsy
     Dosage: 600.000 MG, BID
     Route: 048
     Dates: start: 20220128, end: 20250303
  2. VALPROATE SODIUM [Suspect]
     Active Substance: VALPROATE SODIUM
     Indication: Epilepsy
     Dosage: 250.000 MG, BID (SUSTAINED RELEASE TABLETS)
     Route: 048
     Dates: start: 20220128, end: 20250303
  3. LAMOTRIGINE [Concomitant]
     Active Substance: LAMOTRIGINE
     Indication: Epilepsy
     Dosage: 150.000 MG, BID
     Route: 048
     Dates: start: 20220128, end: 20250303

REACTIONS (3)
  - Hyponatraemia [Recovering/Resolving]
  - Blood potassium decreased [Recovering/Resolving]
  - Syncope [Recovering/Resolving]

NARRATIVE: CASE EVENT DATE: 20250125
